FAERS Safety Report 4750817-9 (Version None)
Quarter: 2005Q3

REPORT INFORMATION
  Report Type: 
  Country: None (occurrence: None)
  Receive Date: 20050822
  Receipt Date: 20050811
  Transmission Date: 20060218
  Serious: Yes (Hospitalization)
  Sender: FDA-Public Use
  Company Number: HQWYE911815AUG05

PATIENT
  Age: 29 Year
  Sex: Female
  Weight: 81.72 kg

DRUGS (18)
  1. EFFEXOR XR [Suspect]
     Indication: ANXIETY
     Dosage: 75 MG 1X PER 1 DAY, ORAL
     Route: 048
     Dates: start: 20050601, end: 20050801
  2. EFFEXOR XR [Suspect]
     Indication: DEPRESSION
     Dosage: 75 MG 1X PER 1 DAY, ORAL
     Route: 048
     Dates: start: 20050601, end: 20050801
  3. METFORMIN HCL [Concomitant]
  4. AMLODIPINE [Concomitant]
  5. ATORVASTATIN CALCIUM [Concomitant]
  6. NIASPAN [Concomitant]
  7. ZESTRIL [Concomitant]
  8. LEVOXYL [Concomitant]
  9. ADVAIR DISKUS 100/50 [Concomitant]
  10. VITAMIN D [Concomitant]
  11. CALCIUM (CALCIUM) [Concomitant]
  12. SINGULAIR [Concomitant]
  13. PROVENTIL (SALBUTAMOL SULFATE) [Concomitant]
  14. NOVOLIN NPH (INSULIN HUMAN INJECTION, ISOPHANE) [Concomitant]
  15. ACETYLSALICYLIC ACID SRT [Concomitant]
  16. TOPIRAMATE [Concomitant]
  17. ORAL CONTRACEPTIVE NOS (ORAL CONTRACEPTIVE NOS) [Concomitant]
  18. PLAVIX [Concomitant]

REACTIONS (10)
  - ASTHMA [None]
  - BLOOD GLUCOSE INCREASED [None]
  - CEREBROVASCULAR ACCIDENT [None]
  - CONDITION AGGRAVATED [None]
  - CONFUSIONAL STATE [None]
  - CONVULSION [None]
  - DRUG WITHDRAWAL SYNDROME [None]
  - HEART RATE INCREASED [None]
  - INSOMNIA [None]
  - LOSS OF CONSCIOUSNESS [None]
